APPROVED DRUG PRODUCT: MAXALT-MLT
Active Ingredient: RIZATRIPTAN BENZOATE
Strength: EQ 10MG BASE
Dosage Form/Route: TABLET, ORALLY DISINTEGRATING;ORAL
Application: N020865 | Product #002 | TE Code: AB
Applicant: ORGANON LLC A SUB OF ORGANON AND CO
Approved: Jun 29, 1998 | RLD: Yes | RS: Yes | Type: RX